APPROVED DRUG PRODUCT: GABAPENTIN
Active Ingredient: GABAPENTIN
Strength: 600MG
Dosage Form/Route: TABLET;ORAL
Application: A077525 | Product #001
Applicant: SUN PHARMACEUTICAL INDUSTRIES LTD
Approved: Aug 24, 2006 | RLD: No | RS: No | Type: DISCN